FAERS Safety Report 9279999 (Version 5)
Quarter: 2014Q1

REPORT INFORMATION
  Report Type: Spontaneous
  Country: AR (occurrence: AR)
  Receive Date: 20130509
  Receipt Date: 20140327
  Transmission Date: 20141002
  Serious: Yes (Other)
  Sender: FDA-Public Use
  Company Number: AR-AMGEN-ARGSP2013032138

PATIENT
  Age: 53 Year
  Sex: Female

DRUGS (8)
  1. ENBREL [Suspect]
     Indication: RHEUMATOID ARTHRITIS
     Dosage: 50 MG, WEEKLY
     Route: 065
     Dates: start: 20101102, end: 20130507
  2. METHOTREXATE [Concomitant]
     Dosage: 10 MG, WEEKLY
  3. NAPROXEN [Concomitant]
     Dosage: 500 MG, DAILY
  4. CETIRIZINE [Concomitant]
     Dosage: 10 MG, AS NEEDED
  5. CLONAZEPAM [Concomitant]
     Dosage: 0.5 MG, DAILY
  6. AMITRIPTYLINE [Concomitant]
     Dosage: 25 MG, 1X/DAY
  7. OMEPRAZOL                          /00661201/ [Concomitant]
     Dosage: UNK
  8. FOLIC ACID [Concomitant]
     Dosage: UNK

REACTIONS (4)
  - Cerebrovascular accident [Not Recovered/Not Resolved]
  - Feeling hot [Recovered/Resolved]
  - Headache [Recovered/Resolved]
  - Sensory disturbance [Not Recovered/Not Resolved]
